FAERS Safety Report 6221307-1 (Version None)
Quarter: 2009Q2

REPORT INFORMATION
  Report Type: 
  Country: None (occurrence: None)
  Receive Date: 20090610
  Receipt Date: 20090605
  Transmission Date: 20091009
  Serious: Yes (Other)
  Sender: FDA-Public Use
  Company Number: CA-ROXANE LABORATORIES, INC.-2009-RO-00558RO

PATIENT
  Age: 66 Year
  Sex: Male

DRUGS (5)
  1. FUROSEMIDE [Suspect]
     Indication: CARDIOVASCULAR DISORDER
  2. ASPIRIN [Suspect]
     Indication: CARDIOVASCULAR DISORDER
  3. LISINOPRIL [Suspect]
     Indication: CARDIOVASCULAR DISORDER
     Dosage: 2.5MG
  4. CARVEDILOL [Suspect]
     Indication: CARDIOVASCULAR DISORDER
  5. SODIUM CHLORIDE [Concomitant]

REACTIONS (1)
  - ANAPHYLACTOID REACTION [None]
